FAERS Safety Report 22059520 (Version 1)
Quarter: 2023Q1

REPORT INFORMATION
  Report Type: Spontaneous
  Country: US (occurrence: None)
  Receive Date: 20230302
  Receipt Date: 20230302
  Transmission Date: 20230418
  Serious: No
  Sender: FDA-Public Use
  Company Number: None

PATIENT
  Age: 64 Year
  Sex: Male
  Weight: 107.41 kg

DRUGS (17)
  1. WELIREG [Suspect]
     Active Substance: BELZUTIFAN
     Indication: Renal cancer
     Dosage: FREQUENCY : DAILY;?
     Route: 048
  2. FLONASE [Concomitant]
     Active Substance: FLUTICASONE PROPIONATE
  3. HYDROCORTISONE [Concomitant]
     Active Substance: HYDROCORTISONE
  4. LISINOPRIL [Concomitant]
     Active Substance: LISINOPRIL
  5. MAGOX [Concomitant]
  6. METFORMIN [Concomitant]
     Active Substance: METFORMIN HYDROCHLORIDE
  7. METOPROLOL [Concomitant]
     Active Substance: METOPROLOL
  8. MUPIROCIN [Concomitant]
     Active Substance: MUPIROCIN
  9. OMEPRAZOLE [Concomitant]
     Active Substance: OMEPRAZOLE
  10. ONDANSETRON [Concomitant]
     Active Substance: ONDANSETRON
  11. PREDNISONE [Concomitant]
     Active Substance: PREDNISONE
  12. RETACRIT [Concomitant]
     Active Substance: EPOETIN ALFA-EPBX
  13. ROSUVASTATIN [Concomitant]
     Active Substance: ROSUVASTATIN
  14. TORSEMIDE [Concomitant]
     Active Substance: TORSEMIDE
  15. TRIAMCINOLONE [Concomitant]
     Active Substance: TRIAMCINOLONE
  16. XANAX [Concomitant]
     Active Substance: ALPRAZOLAM
  17. ZYRTEC [Concomitant]
     Active Substance: CETIRIZINE HYDROCHLORIDE

REACTIONS (2)
  - Malignant neoplasm progression [None]
  - Renal cancer [None]
